FAERS Safety Report 21239699 (Version 1)
Quarter: 2022Q3

REPORT INFORMATION
  Report Type: Spontaneous
  Country: US (occurrence: US)
  Receive Date: 20220822
  Receipt Date: 20220822
  Transmission Date: 20221026
  Serious: No
  Sender: FDA-Public Use
  Company Number: US-SA-SAC20220816001338

PATIENT
  Sex: Male

DRUGS (2)
  1. DUPIXENT [Suspect]
     Active Substance: DUPILUMAB
     Indication: Dermatitis atopic
     Dosage: 300 MG
     Route: 058
     Dates: start: 2018
  2. DUPIXENT [Suspect]
     Active Substance: DUPILUMAB
     Dosage: UNK
     Dates: start: 202111

REACTIONS (5)
  - Dry skin [Recovered/Resolved]
  - Acne [Unknown]
  - Rash [Unknown]
  - Eye disorder [Unknown]
  - Allergic cough [Unknown]

NARRATIVE: CASE EVENT DATE: 20220601
